FAERS Safety Report 9441904 (Version 2)
Quarter: 2017Q3

REPORT INFORMATION
  Report Type: Spontaneous
  Country: US (occurrence: US)
  Receive Date: 20130806
  Receipt Date: 20170925
  Transmission Date: 20171128
  Serious: Yes (Hospitalization)
  Sender: FDA-Public Use
  Company Number: US-RANBAXY-2006US-01555

PATIENT
  Age: 42 Year
  Sex: Female

DRUGS (2)
  1. AMOXICILLIN. [Suspect]
     Active Substance: AMOXICILLIN
     Indication: TOOTH INFECTION
     Dosage: 500 MG, TID
     Route: 048
     Dates: start: 200101, end: 2001
  2. HYDROCODON/IBUPROFEN [Concomitant]
     Indication: TOOTH INFECTION
     Dosage: 7.5/200MG/DAY
     Route: 065

REACTIONS (1)
  - Acute hepatic failure [Recovering/Resolving]

NARRATIVE: CASE EVENT DATE: 2001
